FAERS Safety Report 18597714 (Version 1)
Quarter: 2020Q4

REPORT INFORMATION
  Report Type: Spontaneous
  Country: US (occurrence: US)
  Receive Date: 20201209
  Receipt Date: 20201209
  Transmission Date: 20210114
  Serious: Yes (Hospitalization, Other)
  Sender: FDA-Public Use
  Company Number: US-KERYX BIOPHARMACEUTICALS INC.-2020US007265

PATIENT
  Age: 40 Year
  Sex: Male
  Weight: 74.83 kg

DRUGS (1)
  1. AURYXIA [Suspect]
     Active Substance: TETRAFERRIC TRICITRATE DECAHYDRATE
     Indication: HYPERPHOSPHATAEMIA
     Dosage: 3 GRAM (TABLET), TID
     Route: 048
     Dates: start: 202009, end: 20201116

REACTIONS (5)
  - Pruritus [Not Recovered/Not Resolved]
  - Rectal haemorrhage [Unknown]
  - Infection [Unknown]
  - Constipation [Unknown]
  - Thrombosis [Unknown]

NARRATIVE: CASE EVENT DATE: 20201023
